FAERS Safety Report 24386151 (Version 1)
Quarter: 2024Q4

REPORT INFORMATION
  Report Type: Spontaneous
  Country: FR (occurrence: FR)
  Receive Date: 20241001
  Receipt Date: 20241001
  Transmission Date: 20250115
  Serious: Yes (Hospitalization, Other)
  Sender: B BRAUN
  Company Number: FR-B.Braun Medical Inc.-2162300

PATIENT
  Age: 8 Year
  Sex: Female
  Weight: 37.9 kg

DRUGS (10)
  1. ACETAMINOPHEN [Suspect]
     Active Substance: ACETAMINOPHEN
  2. ACETAMINOPHEN [Suspect]
     Active Substance: ACETAMINOPHEN
  3. CEFTRIAXONE [Concomitant]
     Active Substance: CEFTRIAXONE
  4. METRONIDAZOLE [Concomitant]
     Active Substance: METRONIDAZOLE
  5. AMIKACIN [Concomitant]
     Active Substance: AMIKACIN
  6. CEFOTAXIME [Concomitant]
     Active Substance: CEFOTAXIME SODIUM
  7. BACTRIM [Concomitant]
     Active Substance: SULFAMETHOXAZOLE\TRIMETHOPRIM
  8. GENTAMICIN [Concomitant]
     Active Substance: GENTAMICIN
  9. VANCOMYCIN [Suspect]
     Active Substance: VANCOMYCIN
  10. LEVETIRACETAM [Suspect]
     Active Substance: LEVETIRACETAM

REACTIONS (1)
  - Drug reaction with eosinophilia and systemic symptoms [Recovered/Resolved]
